FAERS Safety Report 10356243 (Version 1)
Quarter: 2014Q3

REPORT INFORMATION
  Report Type: Spontaneous
  Country: JP (occurrence: JP)
  Receive Date: 20140801
  Receipt Date: 20140801
  Transmission Date: 20150326
  Serious: Yes (Hospitalization)
  Sender: FDA-Public Use
  Company Number: JP-ROCHE-1443096

PATIENT
  Age: 75 Year
  Sex: Male
  Weight: 58 kg

DRUGS (1)
  1. ROCEPHIN [Suspect]
     Active Substance: CEFTRIAXONE SODIUM
     Indication: URINARY TRACT INFECTION
     Route: 042
     Dates: start: 20140513, end: 20140522

REACTIONS (2)
  - Cholelithiasis [Recovered/Resolved]
  - Bile duct stone [Recovered/Resolved]

NARRATIVE: CASE EVENT DATE: 20140521
